FAERS Safety Report 5636852-7 (Version None)
Quarter: 2008Q1

REPORT INFORMATION
  Report Type: 
  Country: None (occurrence: None)
  Receive Date: 20080225
  Receipt Date: 20080221
  Transmission Date: 20080703
  Serious: Yes (Death)
  Sender: FDA-Public Use
  Company Number: JP-JNJFOC-20080205125

PATIENT
  Age: 68 Year
  Sex: Male

DRUGS (2)
  1. ITRIZOLE [Suspect]
     Indication: FUNGAL INFECTION
     Route: 041
  2. HABEKACIN [Concomitant]
     Route: 041

REACTIONS (1)
  - PNEUMONIA [None]
